FAERS Safety Report 6141712-1 (Version None)
Quarter: 2009Q1

REPORT INFORMATION
  Report Type: 
  Country: None (occurrence: None)
  Receive Date: 20090331
  Receipt Date: 20090331
  Transmission Date: 20090719
  Serious: Yes (Hospitalization)
  Sender: FDA-Public Use
  Company Number: None

PATIENT
  Age: 71 Year
  Sex: Female
  Weight: 80.2867 kg

DRUGS (1)
  1. ARTHROTEC [Suspect]
     Indication: KNEE OPERATION
     Dosage: PO
     Route: 048

REACTIONS (2)
  - PHARYNGEAL OEDEMA [None]
  - RASH ERYTHEMATOUS [None]
